FAERS Safety Report 24866243 (Version 2)
Quarter: 2025Q1

REPORT INFORMATION
  Report Type: Spontaneous
  Country: IT (occurrence: IT)
  Receive Date: 20250121
  Receipt Date: 20250124
  Transmission Date: 20250409
  Serious: Yes (Other)
  Sender: ROCHE
  Company Number: IT-ROCHE-10000184178

PATIENT
  Age: 71 Year
  Sex: Male

DRUGS (3)
  1. ATEZOLIZUMAB [Suspect]
     Active Substance: ATEZOLIZUMAB
     Indication: Non-small cell lung cancer
     Route: 065
     Dates: start: 202111, end: 202212
  2. CISPLATIN [Concomitant]
     Active Substance: CISPLATIN
     Dates: start: 202111
  3. PEMETREXED [Concomitant]
     Active Substance: PEMETREXED
     Dates: start: 202111

REACTIONS (7)
  - Hypothyroidism [Recovered/Resolved]
  - Psoriasis [Recovered/Resolved]
  - Cystitis [Recovered/Resolved]
  - Cardiac failure [Recovered/Resolved]
  - Dermatitis [Recovered/Resolved]
  - Pruritus [Recovered/Resolved]
  - Haematuria [Recovered/Resolved]
